FAERS Safety Report 7075712-4 (Version None)
Quarter: 2010Q4

REPORT INFORMATION
  Report Type: 
  Country: None (occurrence: None)
  Receive Date: 20101101
  Receipt Date: 20101021
  Transmission Date: 20110411
  Serious: Yes (Hospitalization, Other)
  Sender: FDA-Public Use
  Company Number: US-BIOGENIDEC-2009BI007974

PATIENT
  Age: 48 Year
  Sex: Female
  Weight: 97 kg

DRUGS (1)
  1. TYSABRI [Suspect]
     Indication: MULTIPLE SCLEROSIS
     Route: 042
     Dates: start: 20080422

REACTIONS (10)
  - ASTHENIA [None]
  - CARDIAC FLUTTER [None]
  - DYSURIA [None]
  - EXOSTOSIS [None]
  - FATIGUE [None]
  - FOOT OPERATION [None]
  - LOCALISED INFECTION [None]
  - POST PROCEDURAL COMPLICATION [None]
  - STRESS [None]
  - TOE AMPUTATION [None]
